FAERS Safety Report 22229598 (Version 1)
Quarter: 2023Q2

REPORT INFORMATION
  Report Type: Spontaneous
  Country: US (occurrence: None)
  Receive Date: 20230418
  Receipt Date: 20230418
  Transmission Date: 20230722
  Serious: No
  Sender: FDA-Public Use
  Company Number: None

PATIENT
  Age: 71 Year
  Sex: Female

DRUGS (1)
  1. ENBREL [Suspect]
     Active Substance: ETANERCEPT
     Indication: Polyarthritis
     Dosage: 50MG OTHER SUBCUTANEOUS
     Route: 058
     Dates: start: 202301

REACTIONS (7)
  - Transient ischaemic attack [None]
  - Diarrhoea [None]
  - Vertigo [None]
  - Erythema [None]
  - Erythema [None]
  - Blood pressure increased [None]
  - Product quality issue [None]

NARRATIVE: CASE EVENT DATE: 20230418
